FAERS Safety Report 9030666 (Version 59)
Quarter: 2023Q1

REPORT INFORMATION
  Report Type: Other
  Country: CA (occurrence: None)
  Receive Date: 20130123
  Receipt Date: 20230209
  Transmission Date: 20230418
  Serious: Yes (Hospitalization, Other)
  Sender: FDA-Public Use
  Company Number: CA-ROCHE-1098537

PATIENT
  Age: 29 Year
  Sex: Female
  Weight: 124.1 kg

DRUGS (14)
  1. ACTEMRA [Suspect]
     Active Substance: TOCILIZUMAB
     Indication: Rheumatoid arthritis
     Route: 042
     Dates: start: 20120402
  2. ACTEMRA [Suspect]
     Active Substance: TOCILIZUMAB
     Route: 042
     Dates: start: 20121029, end: 20131022
  3. ACTEMRA [Suspect]
     Active Substance: TOCILIZUMAB
     Dosage: MOST RECENT DOSE- 14/NOV/2014, 06/JAN/2015, 03/FEB/2015, AND 03/MAR2015.
     Route: 042
     Dates: start: 20131119
  4. ACTEMRA [Suspect]
     Active Substance: TOCILIZUMAB
     Route: 042
     Dates: start: 20120518, end: 20120829
  5. ACTEMRA [Suspect]
     Active Substance: TOCILIZUMAB
     Route: 042
     Dates: start: 20170718
  6. ACTEMRA [Suspect]
     Active Substance: TOCILIZUMAB
     Indication: Rheumatoid arthritis
     Route: 058
     Dates: start: 20160202, end: 20160504
  7. AMITRIPTYLINE [Suspect]
     Active Substance: AMITRIPTYLINE
     Indication: Rheumatoid arthritis
     Route: 048
  8. TRAMADOL [Concomitant]
     Active Substance: TRAMADOL
     Indication: Product used for unknown indication
  9. OMEPRAZOLE [Concomitant]
     Active Substance: OMEPRAZOLE
     Indication: Product used for unknown indication
  10. VITAMIN A [Concomitant]
     Active Substance: VITAMIN A
     Indication: Product used for unknown indication
  11. HERBALS [Concomitant]
     Active Substance: HERBALS
     Indication: Product used for unknown indication
  12. METHOTREXATE [Concomitant]
     Active Substance: METHOTREXATE
     Indication: Product used for unknown indication
  13. NAPROXEN [Concomitant]
     Active Substance: NAPROXEN
     Indication: Product used for unknown indication
     Route: 048
  14. CALCIUM [Concomitant]
     Active Substance: CALCIUM
     Indication: Product used for unknown indication

REACTIONS (37)
  - Hernia [Recovering/Resolving]
  - Anaemia [Unknown]
  - Weight decreased [Not Recovered/Not Resolved]
  - Weight increased [Unknown]
  - Helicobacter infection [Unknown]
  - Throat tightness [Not Recovered/Not Resolved]
  - Pain [Not Recovered/Not Resolved]
  - Bronchitis [Recovered/Resolved]
  - Nasopharyngitis [Unknown]
  - Dizziness [Not Recovered/Not Resolved]
  - Disorientation [Not Recovered/Not Resolved]
  - Euphoric mood [Not Recovered/Not Resolved]
  - Malaise [Unknown]
  - Diarrhoea [Unknown]
  - Nasopharyngitis [Recovering/Resolving]
  - Tooth disorder [Unknown]
  - Heart rate increased [Not Recovered/Not Resolved]
  - Anal fissure [Unknown]
  - Gait disturbance [Unknown]
  - Arthralgia [Unknown]
  - Sinusitis [Recovering/Resolving]
  - Hypertension [Unknown]
  - Pyrexia [Unknown]
  - Tooth infection [Unknown]
  - Oxygen saturation decreased [Unknown]
  - Weight increased [Unknown]
  - Blood pressure increased [Unknown]
  - Drug ineffective [Unknown]
  - Urinary tract infection [Recovered/Resolved]
  - Disability assessment scale score increased [Unknown]
  - Migraine [Unknown]
  - Blood pressure systolic increased [Unknown]
  - Heart rate increased [Unknown]
  - Ovarian disorder [Recovered/Resolved]
  - Blood iron decreased [Recovering/Resolving]
  - Serum ferritin decreased [Recovering/Resolving]
  - Blood pressure diastolic abnormal [Unknown]

NARRATIVE: CASE EVENT DATE: 20120720
